FAERS Safety Report 6520068-6 (Version None)
Quarter: 2009Q4

REPORT INFORMATION
  Report Type: 
  Country: None (occurrence: None)
  Receive Date: 20091229
  Receipt Date: 20091222
  Transmission Date: 20100525
  Serious: Yes (Death)
  Sender: FDA-Public Use
  Company Number: JP-ROCHE-676710

PATIENT
  Age: 68 Year
  Sex: Female

DRUGS (3)
  1. ROCEPHIN [Suspect]
     Indication: MENINGITIS PNEUMOCOCCAL
     Dosage: ROUTE: INTRAVENOUS (NOT OTHERWISE SPECIFIED)
     Route: 042
  2. VANCOMYCIN HCL [Concomitant]
  3. ADRENOCORTICAL HORMONE [Concomitant]
     Dosage: ADRENAL HORMONE PREPARATIONS

REACTIONS (1)
  - DISEASE PROGRESSION [None]
